FAERS Safety Report 21401676 (Version 1)
Quarter: 2022Q3

REPORT INFORMATION
  Report Type: Spontaneous
  Country: US (occurrence: None)
  Receive Date: 20220930
  Receipt Date: 20220930
  Transmission Date: 20221026
  Serious: No
  Sender: FDA-Public Use
  Company Number: None

PATIENT
  Age: 75 Year
  Sex: Male
  Weight: 135.53 kg

DRUGS (14)
  1. CAPECITABINE [Suspect]
     Active Substance: CAPECITABINE
     Indication: Colon cancer
     Dosage: OTHER QUANTITY : 2500-2000MG;?FREQUENCY : TWICE A DAY;?
     Route: 048
     Dates: start: 202204
  2. ANUSOL-HC RECTAL [Concomitant]
  3. ASPIRIN [Concomitant]
     Active Substance: ASPIRIN
  4. ELIQUIS [Concomitant]
  5. FERROUS SULFATE [Concomitant]
     Active Substance: FERROUS SULFATE
  6. FLUZONE [Concomitant]
     Active Substance: INFLUENZA A VIRUS A/CALIFORNIA/7/2009 X-179A (H1N1) ANTIGEN (FORMALDEHYDE INACTIVATED)\INFLUENZA A V
  7. FOLIC ACID [Concomitant]
     Active Substance: FOLIC ACID
  8. FUROSEMIDE [Concomitant]
     Active Substance: FUROSEMIDE
  9. GABAPENTIN [Concomitant]
  10. GABAPENTIN [Concomitant]
     Active Substance: GABAPENTIN
  11. LOPERAMIDE [Concomitant]
     Active Substance: LOPERAMIDE
  12. METOPROLOL TARTRATE [Concomitant]
  13. SIMVASTATIN [Concomitant]
     Active Substance: SIMVASTATIN
  14. TERAZOSIN HCL [Concomitant]

REACTIONS (1)
  - Platelet count decreased [None]
